FAERS Safety Report 10407223 (Version 6)
Quarter: 2014Q4

REPORT INFORMATION
  Report Type: Spontaneous
  Country: US (occurrence: US)
  Receive Date: 20140825
  Receipt Date: 20141014
  Transmission Date: 20150528
  Serious: Yes (Hospitalization)
  Sender: FDA-Public Use
  Company Number: US-009507513-1408USA012311

PATIENT
  Age: 30 Year
  Sex: Female
  Weight: 76.64 kg

DRUGS (3)
  1. CLARITIN [Suspect]
     Active Substance: LORATADINE
     Indication: SEASONAL ALLERGY
     Dosage: 10 MG, QD
     Route: 048
     Dates: start: 20140727, end: 20140802
  2. ONE-A-DAY WOMEN^S [Concomitant]
     Active Substance: VITAMINS
     Indication: PRODUCT USED FOR UNKNOWN INDICATION
     Dosage: UNK, UNKNOWN
  3. CLARITIN [Suspect]
     Active Substance: LORATADINE
     Dosage: UNK UNK, UNKNOWN
     Route: 048
     Dates: start: 2012

REACTIONS (23)
  - Visual impairment [Unknown]
  - Throat tightness [Unknown]
  - Paranoia [Recovered/Resolved]
  - Hallucination [Unknown]
  - Feeling abnormal [Recovering/Resolving]
  - Muscular weakness [Unknown]
  - Neck pain [Unknown]
  - Anxiety disorder [Unknown]
  - Headache [Recovering/Resolving]
  - Back pain [Recovering/Resolving]
  - Dizziness [Recovering/Resolving]
  - Disorientation [Unknown]
  - Pain in extremity [Unknown]
  - Myalgia [Unknown]
  - Dehydration [Unknown]
  - Psychomotor hyperactivity [Unknown]
  - Psychotic disorder [Unknown]
  - Delusion [Unknown]
  - Mania [Unknown]
  - Paraphilia [Unknown]
  - Tachycardia [Unknown]
  - Hospitalisation [Recovered/Resolved]
  - Insomnia [Recovering/Resolving]

NARRATIVE: CASE EVENT DATE: 2014
